FAERS Safety Report 11853644 (Version 1)
Quarter: 2015Q4

REPORT INFORMATION
  Report Type: Other
  Country: US (occurrence: US)
  Receive Date: 20151219
  Receipt Date: 20151219
  Transmission Date: 20160305
  Serious: Yes (Disabling)
  Sender: FDA-Public Use
  Company Number: US-HETERO LABS LTD-1045681

PATIENT
  Age: 28 Year
  Sex: Female

DRUGS (1)
  1. LEVOFLOXACIN. [Suspect]
     Active Substance: LEVOFLOXACIN
     Indication: SINUSITIS

REACTIONS (18)
  - Myalgia [Unknown]
  - Autonomic nervous system imbalance [Unknown]
  - Nervous system disorder [Unknown]
  - Cardiovascular disorder [Unknown]
  - Tendonitis [Unknown]
  - Affective disorder [Unknown]
  - Tendon pain [Unknown]
  - Dry eye [Unknown]
  - Cognitive disorder [Unknown]
  - Gastrointestinal disorder [Unknown]
  - Peripheral coldness [Unknown]
  - Arthralgia [Unknown]
  - Sensory disturbance [Unknown]
  - Neuropathy peripheral [Unknown]
  - Confusional state [Unknown]
  - Sleep disorder [Unknown]
  - Muscular weakness [Unknown]
  - Visual impairment [Unknown]
